FAERS Safety Report 6468834-X (Version None)
Quarter: 2009Q4

REPORT INFORMATION
  Report Type: 
  Country: None (occurrence: None)
  Receive Date: 20091203
  Receipt Date: 20071005
  Transmission Date: 20100525
  Serious: No
  Sender: FDA-Public Use
  Company Number: JP-ELI_LILLY_AND_COMPANY-JP200612002594

PATIENT
  Sex: Female
  Weight: 35 kg

DRUGS (2)
  1. RALOXIFENE HYDROCHLORIDE [Suspect]
     Indication: OSTEOPOROSIS POSTMENOPAUSAL
     Dosage: 60 MG, DAILY (1/D)
     Route: 048
     Dates: start: 20050111, end: 20060801
  2. METHYCOBAL [Concomitant]
     Indication: BACK PAIN
     Dosage: 1500 UG, DAILY (1/D)
     Route: 048
     Dates: start: 20041217

REACTIONS (2)
  - ANAEMIA [None]
  - HYPOCALCAEMIA [None]
